FAERS Safety Report 8019568-1 (Version None)
Quarter: 2012Q1

REPORT INFORMATION
  Report Type: 
  Country: None (occurrence: None)
  Receive Date: 20120103
  Receipt Date: 20111024
  Transmission Date: 20120608
  Serious: Yes (Other)
  Sender: FDA-Public Use
  Company Number: FR-BAYER-2011-082287

PATIENT
  Age: 31 Year
  Sex: Male
  Weight: 82 kg

DRUGS (6)
  1. MOXIFLOXACIN HCL [Suspect]
     Indication: STAPHYLOCOCCAL INFECTION
     Dosage: 400 MG, QD
     Dates: start: 20110409
  2. CUBICIN [Concomitant]
     Indication: STAPHYLOCOCCAL INFECTION
     Dosage: UNK
     Dates: start: 20110405, end: 20110409
  3. RIFADIN [Concomitant]
     Indication: STAPHYLOCOCCAL INFECTION
     Dosage: 300 MG, BID
     Route: 048
     Dates: start: 20110409, end: 20110601
  4. ZYPREXA [Concomitant]
     Indication: SCHIZOPHRENIA
     Dosage: 10 MG, QD
     Route: 048
     Dates: start: 20030101
  5. LORAZEPAM [Concomitant]
     Indication: SCHIZOPHRENIA
     Dosage: 1 MG, QD
     Route: 048
     Dates: start: 20030101
  6. CORTICOSTEROIDS [Concomitant]
     Dosage: UNK

REACTIONS (13)
  - DYSGEUSIA [None]
  - HYPERSENSITIVITY [None]
  - MYALGIA [None]
  - MENTAL DISORDER [None]
  - DYSPNOEA [None]
  - NERVOUSNESS [None]
  - HYPERLIPIDAEMIA [None]
  - TENDONITIS [None]
  - VISUAL IMPAIRMENT [None]
  - DEPRESSION [None]
  - PAROSMIA [None]
  - BLOOD GLUCOSE INCREASED [None]
  - SKIN DISORDER [None]
